FAERS Safety Report 5324077-4 (Version None)
Quarter: 2007Q2

REPORT INFORMATION
  Report Type: 
  Country: None (occurrence: None)
  Receive Date: 20070514
  Receipt Date: 20070503
  Transmission Date: 20071010
  Serious: Yes (Hospitalization, Other)
  Sender: FDA-Public Use
  Company Number: US-ELI_LILLY_AND_COMPANY-US200705000951

PATIENT
  Sex: Female

DRUGS (4)
  1. FORTEO [Suspect]
     Indication: OSTEOPOROSIS
     Dosage: UNK, UNK
     Dates: start: 20060101
  2. FORTEO [Suspect]
     Dosage: UNK D/F, UNK
  3. OXYCONTIN [Concomitant]
  4. CALCIUM CHLORIDE [Concomitant]

REACTIONS (6)
  - CRYING [None]
  - FALL [None]
  - FOOT FRACTURE [None]
  - PAIN [None]
  - PELVIC FRACTURE [None]
  - SURGERY [None]
